FAERS Safety Report 6793944-7 (Version None)
Quarter: 2010Q2

REPORT INFORMATION
  Report Type: 
  Country: None (occurrence: None)
  Receive Date: 20100624
  Receipt Date: 20050912
  Transmission Date: 20101027
  Serious: No
  Sender: FDA-Public Use
  Company Number: US-PFIZER INC-23100248

PATIENT
  Sex: Male

DRUGS (3)
  1. ARGATROBAN [Suspect]
     Dosage: INTERVAL:  ONCE
     Route: 042
     Dates: start: 20050912, end: 20050912
  2. CONTRAST [Suspect]
     Indication: ANGIOGRAM
  3. BENADRYL [Concomitant]

REACTIONS (2)
  - EYE SWELLING [None]
  - INJECTION SITE HAEMORRHAGE [None]
